FAERS Safety Report 6388406-5 (Version None)
Quarter: 2009Q4

REPORT INFORMATION
  Report Type: 
  Country: None (occurrence: None)
  Receive Date: 20091001
  Receipt Date: 20091001
  Transmission Date: 20100525
  Serious: Yes (Hospitalization)
  Sender: FDA-Public Use
  Company Number: None

PATIENT
  Age: 61 Year
  Sex: Male
  Weight: 90.7 kg

DRUGS (1)
  1. DOCETAXEL [Suspect]
     Indication: PROSTATE CANCER STAGE IV
     Dosage: 150 MG ONCE IV
     Route: 042
     Dates: start: 20090804, end: 20090804

REACTIONS (8)
  - ABDOMINAL PAIN LOWER [None]
  - CHEST PAIN [None]
  - DIARRHOEA [None]
  - FATIGUE [None]
  - GLOSSODYNIA [None]
  - HYPERSENSITIVITY [None]
  - INFUSION SITE REACTION [None]
  - NEUTROPENIA [None]
